FAERS Safety Report 17016239 (Version 1)
Quarter: 2019Q4

REPORT INFORMATION
  Report Type: Spontaneous
  Country: NL (occurrence: NL)
  Receive Date: 20191111
  Receipt Date: 20191111
  Transmission Date: 20200122
  Serious: Yes (Other)
  Sender: FDA-Public Use
  Company Number: NL-SA-2019SA309768

PATIENT
  Sex: Female
  Weight: 68 kg

DRUGS (4)
  1. COLECALCIFEROL [Concomitant]
     Active Substance: CHOLECALCIFEROL
  2. FENPROCOUMON [Concomitant]
     Active Substance: PHENPROCOUMON
  3. PRALUENT [Suspect]
     Active Substance: ALIROCUMAB
     Indication: TYPE IIB HYPERLIPIDAEMIA
     Dosage: 1 DF, QOW (EVERY 14 DAYS)
     Route: 058
     Dates: start: 20170717
  4. EZETIMIBE. [Concomitant]
     Active Substance: EZETIMIBE

REACTIONS (1)
  - Petit mal epilepsy [Recovered/Resolved]
